FAERS Safety Report 20394850 (Version 1)
Quarter: 2022Q1

REPORT INFORMATION
  Report Type: Spontaneous
  Country: US (occurrence: None)
  Receive Date: 20220130
  Receipt Date: 20220130
  Transmission Date: 20220424
  Serious: No
  Sender: FDA-Public Use
  Company Number: 2022A025673

PATIENT

DRUGS (1)
  1. LYNPARZA [Suspect]
     Active Substance: OLAPARIB
     Indication: Ovarian cancer
     Route: 048
     Dates: start: 20211216

REACTIONS (6)
  - Red blood cell count increased [Unknown]
  - Illness [Unknown]
  - Stress [Unknown]
  - White blood cell count increased [Unknown]
  - Nausea [Unknown]
  - Vomiting [Unknown]
